FAERS Safety Report 25774198 (Version 1)
Quarter: 2025Q3

REPORT INFORMATION
  Report Type: Spontaneous
  Country: CN (occurrence: CN)
  Receive Date: 20250908
  Receipt Date: 20250908
  Transmission Date: 20251021
  Serious: Yes (Hospitalization, Other)
  Sender: MYLAN
  Company Number: CN-MYLANLABS-2025M1075527

PATIENT
  Age: 73 Year
  Sex: Female
  Weight: 60 kg

DRUGS (2)
  1. LIPITOR [Suspect]
     Active Substance: ATORVASTATIN CALCIUM
     Indication: Myocardial infarction
     Dosage: 20 MILLIGRAM, PM (EVERY NIGHT)
     Dates: start: 20250817, end: 20250820
  2. LIPITOR [Suspect]
     Active Substance: ATORVASTATIN CALCIUM
     Indication: Antiplatelet therapy

REACTIONS (2)
  - Acute hepatic failure [Recovering/Resolving]
  - Incorrect route of product administration [Unknown]

NARRATIVE: CASE EVENT DATE: 20250817
